FAERS Safety Report 4345878-5 (Version None)
Quarter: 2004Q2

REPORT INFORMATION
  Report Type: 
  Country: None (occurrence: None)
  Receive Date: 20040426
  Receipt Date: 20040108
  Transmission Date: 20050107
  Serious: No
  Sender: FDA-Public Use
  Company Number: US-BRISTOL-MYERS SQUIBB COMPANY-12472973

PATIENT
  Sex: Female

DRUGS (1)
  1. CYTOXAN [Suspect]
     Route: 048

REACTIONS (1)
  - MEDICATION ERROR [None]
